FAERS Safety Report 7258077-4 (Version None)
Quarter: 2011Q1

REPORT INFORMATION
  Report Type: 
  Country: None (occurrence: None)
  Receive Date: 20110129
  Receipt Date: 20100702
  Transmission Date: 20110831
  Serious: No
  Sender: FDA-Public Use
  Company Number: US-ABBOTT-10P-163-0655508-00

PATIENT
  Sex: Female

DRUGS (3)
  1. HUMIRA [Suspect]
     Indication: ANKYLOSING SPONDYLITIS
     Route: 058
     Dates: start: 20070101
  2. ALBUTEROL [Concomitant]
     Indication: ASTHMA
     Dosage: 1 TO 2 PUFFS
  3. PREDNISONE [Concomitant]
     Indication: ASTHMA

REACTIONS (3)
  - INCORRECT PRODUCT STORAGE [None]
  - INJECTION SITE PAIN [None]
  - POOR QUALITY DRUG ADMINISTERED [None]
